FAERS Safety Report 10186005 (Version 4)
Quarter: 2014Q2

REPORT INFORMATION
  Report Type: Spontaneous
  Country: JP (occurrence: JP)
  Receive Date: 20140521
  Receipt Date: 20140617
  Transmission Date: 20141212
  Serious: Yes (Death)
  Sender: FDA-Public Use
  Company Number: JP-BRISTOL-MYERS SQUIBB COMPANY-20786828

PATIENT
  Age: 81 Year
  Sex: Female
  Weight: 37 kg

DRUGS (20)
  1. ERBITUX SOLN FOR INF 5MG/ML [Suspect]
     Indication: LIP AND/OR ORAL CAVITY CANCER
     Dosage: 13MAR14-17APR14:34DAYS; 400 MG/M2 INITIALLY
     Route: 041
     Dates: start: 20140306, end: 20140417
  2. ALLOID [Concomitant]
     Indication: PROPHYLAXIS
     Route: 048
     Dates: start: 20140306, end: 20140417
  3. CALONAL [Concomitant]
     Indication: PAIN
     Route: 048
     Dates: start: 20140306, end: 20140417
  4. HANGE-SHASHIN-TO [Concomitant]
     Indication: PROPHYLAXIS
     Route: 048
     Dates: start: 20140306, end: 20140417
  5. DEPAS [Concomitant]
     Dosage: TAB
     Route: 048
     Dates: start: 20140307, end: 20140417
  6. NEXIUM [Concomitant]
     Route: 048
     Dates: start: 20140306, end: 20140417
  7. PROMAC [Concomitant]
     Indication: PROPHYLAXIS
     Route: 048
     Dates: start: 20140306, end: 20140417
  8. MARZULENE-S [Concomitant]
     Indication: PROPHYLAXIS
     Route: 048
     Dates: start: 20140306, end: 20140417
  9. MYSLEE [Concomitant]
     Route: 048
     Dates: start: 20140307, end: 20140417
  10. MICARDIS [Concomitant]
     Dosage: TAB
     Route: 048
     Dates: start: 20140306, end: 20140417
  11. MINOMYCIN [Concomitant]
     Indication: PROPHYLAXIS
     Dosage: CAP
     Route: 048
     Dates: start: 20140306, end: 20140417
  12. METHYCOBAL [Concomitant]
     Dosage: TAB
     Route: 048
     Dates: start: 20140306, end: 20140312
  13. LIVALO [Concomitant]
     Dosage: TAB
     Route: 048
     Dates: start: 20140307, end: 20140417
  14. LOXONIN [Concomitant]
     Indication: PAIN
     Route: 048
     Dates: start: 20140306, end: 20140417
  15. DEXART [Concomitant]
     Route: 065
     Dates: start: 20140306, end: 20140306
  16. POLARAMINE [Concomitant]
     Route: 065
     Dates: start: 20140306, end: 20140306
  17. NORMAL SALINE [Concomitant]
     Dosage: 1 DF:100MLX3+ 400M1
     Route: 065
  18. OXYCONTIN [Concomitant]
     Indication: PAIN
     Route: 048
     Dates: start: 20140330, end: 20140417
  19. NOVAMIN [Concomitant]
     Indication: PAIN
     Route: 048
     Dates: start: 20140330, end: 20140417
  20. TRAMAL [Concomitant]
     Indication: PAIN
     Route: 048
     Dates: start: 20140317, end: 20140329

REACTIONS (5)
  - Disseminated intravascular coagulation [Fatal]
  - Staphylococcal sepsis [Fatal]
  - Pneumonia [Fatal]
  - Pleural effusion [Fatal]
  - Anaemia [Fatal]
